FAERS Safety Report 7298567-1 (Version None)
Quarter: 2011Q1

REPORT INFORMATION
  Report Type: 
  Country: None (occurrence: None)
  Receive Date: 20110217
  Receipt Date: 20110210
  Transmission Date: 20110831
  Serious: Yes (Other)
  Sender: FDA-Public Use
  Company Number: TR-ABBOTT-11P-161-0704688-00

PATIENT
  Age: 35 Year
  Sex: Male

DRUGS (4)
  1. VALPROATE SODIUM [Suspect]
     Indication: BIPOLAR DISORDER
  2. DIAZEPAM [Concomitant]
     Indication: BIPOLAR DISORDER
  3. VALPROATE SODIUM [Suspect]
  4. DIAZEPAM [Concomitant]

REACTIONS (3)
  - IRRITABILITY [None]
  - AGITATION [None]
  - AGGRESSION [None]
